FAERS Safety Report 4420977-8 (Version None)
Quarter: 2004Q2

REPORT INFORMATION
  Report Type: 
  Country: None (occurrence: None)
  Receive Date: 20040621
  Receipt Date: 20040309
  Transmission Date: 20050107
  Serious: Yes (Death, Hospitalization)
  Sender: FDA-Public Use
  Company Number: A-US2003-02314

PATIENT
  Age: 54 Year
  Sex: Female
  Weight: 83 kg

DRUGS (12)
  1. TRACLEER [Suspect]
     Indication: PULMONARY HYPERTENSION
     Dosage: 62.5 MG, BID, ORAL; 125 MG, BID
     Route: 048
     Dates: start: 20021101
  2. FLOLAN (EPOPROSENOL SODIUM) [Concomitant]
  3. LASIX [Concomitant]
  4. ALDACTONE [Concomitant]
  5. COUMADIN [Concomitant]
  6. POTASSIUM CHLORIDE [Concomitant]
  7. SYNTHROID [Concomitant]
  8. MEDROXYPROGESTERONE ACETATE [Concomitant]
  9. SEROQUEL (QUETIPAINE) [Concomitant]
  10. AMBIEN [Concomitant]
  11. PERCOCET (PARACETAMOL, OXYCODONE TEREPHTHALATE, OXYCODONE HYDROCHLORID [Concomitant]
  12. FENTANYL [Concomitant]

REACTIONS (6)
  - ARTHRALGIA [None]
  - BLOOD ALKALINE PHOSPHATASE INCREASED [None]
  - JOINT SWELLING [None]
  - PULMONARY HYPERTENSION [None]
  - RESPIRATORY FAILURE [None]
  - TENDONITIS [None]
